FAERS Safety Report 8409736-9 (Version None)
Quarter: 2012Q2

REPORT INFORMATION
  Report Type: 
  Country: None (occurrence: None)
  Receive Date: 20120529
  Receipt Date: 20120518
  Transmission Date: 20120825
  Serious: Yes (Hospitalization)
  Sender: FDA-Public Use
  Company Number: WAES 1205USA03391

PATIENT
  Age: 65 Year
  Sex: Female
  Weight: 53.0709 kg

DRUGS (27)
  1. DECADRON [Suspect]
     Indication: MULTIPLE MYELOMA
     Dosage: PO
     Route: 048
     Dates: start: 20110808
  2. NEURONTIN [Concomitant]
  3. SYNTHROID [Concomitant]
  4. OMEPRAZOLE [Concomitant]
  5. OXYCODONE HCL [Concomitant]
  6. TRAZODONE HCL [Concomitant]
  7. DILAUDID [Suspect]
     Indication: PRODUCT USED FOR UNKNOWN INDICATION
     Dosage: UNK
  8. CELEXA [Concomitant]
  9. MRALAX [Concomitant]
  10. FOLIC ACID [Concomitant]
  11. NEXIUM [Concomitant]
  12. OXYCONTIN [Concomitant]
  13. VITAMIN B COMPLEX CAP [Concomitant]
  14. COLACE [Concomitant]
  15. EFFEXOR XR [Concomitant]
  16. LIPITOR [Concomitant]
  17. SENNA-MINT WAF [Concomitant]
  18. KLOR-CON [Concomitant]
  19. ZOFRAN [Concomitant]
  20. BORTEZOMIB [Suspect]
     Indication: MULTIPLE MYELOMA
     Dosage: 1.3 MG/M2(2) UNK, IV
     Route: 042
     Dates: start: 20110808
  21. FAMVI [Concomitant]
  22. MECLIZINE HYDROCHLORIDE [Concomitant]
  23. ZYRTEC [Concomitant]
  24. MAGNESIUM OXIDE [Concomitant]
  25. VITAMIN TAB [Concomitant]
  26. PERIDEX (CHLORHEXIDINE GLUCONATE) [Concomitant]
  27. ASPIRIN [Concomitant]

REACTIONS (11)
  - SOMNOLENCE [None]
  - SINUS TACHYCARDIA [None]
  - PNEUMONIA [None]
  - CONDITION AGGRAVATED [None]
  - BRONCHIOLITIS [None]
  - PYREXIA [None]
  - MUSCULOSKELETAL CHEST PAIN [None]
  - CONFUSIONAL STATE [None]
  - DISORIENTATION [None]
  - PLEURAL EFFUSION [None]
  - OVERDOSE [None]
